FAERS Safety Report 6544474-9 (Version None)
Quarter: 2010Q1

REPORT INFORMATION
  Report Type: 
  Country: None (occurrence: None)
  Receive Date: 20100121
  Receipt Date: 20100114
  Transmission Date: 20100710
  Serious: Yes (Hospitalization)
  Sender: FDA-Public Use
  Company Number: SE-ROCHE-674069

PATIENT
  Age: 67 Year
  Sex: Male

DRUGS (4)
  1. XELODA [Suspect]
     Dosage: DRUG NAME: XELODA FC TABL. DOSE: CC.
     Route: 048
     Dates: start: 20091001, end: 20091101
  2. MATRIFEN [Concomitant]
     Dosage: DRUG: MATRIFEN TRANSDERMAL PATCH.
  3. LEVAXIN TABLETS [Concomitant]
  4. FRAGMIN [Concomitant]
     Dosage: DRUG : FRAGMIN SOLUTION FOR INJ.

REACTIONS (8)
  - DIARRHOEA [None]
  - HAEMOGLOBIN DECREASED [None]
  - LEUKOPENIA [None]
  - MALNUTRITION [None]
  - MUCOSAL INFLAMMATION [None]
  - PYREXIA [None]
  - STOMATITIS [None]
  - VOMITING [None]
